FAERS Safety Report 4861384-3 (Version None)
Quarter: 2005Q4

REPORT INFORMATION
  Report Type: 
  Country: None (occurrence: None)
  Receive Date: 20051129
  Receipt Date: 20050124
  Transmission Date: 20060501
  Serious: Yes (Disabling)
  Sender: FDA-Public Use
  Company Number: WAES 0501USA03565

PATIENT
  Age: 72 Year
  Sex: Female

DRUGS (8)
  1. FOSAMAX [Suspect]
     Indication: OSTEOPOROSIS
     Dosage: 70 MG WKY PO
     Route: 048
     Dates: start: 20010101, end: 20041225
  2. CELEBREX [Concomitant]
  3. HYZAAR [Concomitant]
  4. NORVASC [Concomitant]
  5. TYLENOL [Concomitant]
  6. VIOXX [Concomitant]
  7. POTASSIUM (UNSPECIFIED) [Concomitant]
  8. VITAMIN D (UNSPECIFIED) [Concomitant]

REACTIONS (2)
  - ARTHRALGIA [None]
  - MYALGIA [None]
